FAERS Safety Report 24677588 (Version 3)
Quarter: 2024Q4

REPORT INFORMATION
  Report Type: Spontaneous
  Country: US (occurrence: US)
  Receive Date: 20241129
  Receipt Date: 20241223
  Transmission Date: 20250115
  Serious: Yes (Other)
  Sender: SANOFI AVENTIS
  Company Number: US-SA-2024SA348219

PATIENT
  Age: 54 Year
  Sex: Female

DRUGS (1)
  1. DUPIXENT [Suspect]
     Active Substance: DUPILUMAB
     Indication: Eosinophilic oesophagitis
     Dosage: 300 MG, QW
     Route: 058
     Dates: start: 20241031

REACTIONS (9)
  - Neuropathy peripheral [Unknown]
  - Blood pressure decreased [Unknown]
  - Anaemia [Recovered/Resolved]
  - Vertigo [Recovered/Resolved]
  - Pain in extremity [Unknown]
  - Oropharyngeal pain [Unknown]
  - Dizziness [Not Recovered/Not Resolved]
  - Injection site pain [Unknown]
  - Rash [Recovered/Resolved]

NARRATIVE: CASE EVENT DATE: 20240101
